FAERS Safety Report 9137499 (Version 1)
Quarter: 2013Q1

REPORT INFORMATION
  Report Type: Spontaneous
  Country: US (occurrence: US)
  Receive Date: 20130219
  Receipt Date: 20130219
  Transmission Date: 20140127
  Serious: No
  Sender: FDA-Public Use
  Company Number: US-BRISTOL-MYERS SQUIBB COMPANY-17148453

PATIENT
  Age: 48 Year
  Sex: Female

DRUGS (5)
  1. ABATACEPT SUBQ INJECTION 125MG/ML [Suspect]
     Dosage: FOR LAST 3 MONTHS.
     Route: 058
  2. TOPAMAX [Concomitant]
  3. CYTOMEL [Concomitant]
  4. FLEXERIL [Concomitant]
  5. MORPHINE [Concomitant]

REACTIONS (1)
  - Headache [Unknown]
